FAERS Safety Report 14670839 (Version 18)
Quarter: 2019Q4

REPORT INFORMATION
  Report Type: Spontaneous
  Country: US (occurrence: US)
  Receive Date: 20180322
  Receipt Date: 20191218
  Transmission Date: 20200122
  Serious: Yes (Other)
  Sender: FDA-Public Use
  Company Number: US-PFIZER INC-2018113863

PATIENT
  Age: 56 Year
  Sex: Female
  Weight: 67.12 kg

DRUGS (19)
  1. EMBEDA [Suspect]
     Active Substance: MORPHINE SULFATE\NALTREXONE HYDROCHLORIDE
     Dosage: UNK
  2. EMBEDA [Suspect]
     Active Substance: MORPHINE SULFATE\NALTREXONE HYDROCHLORIDE
     Dosage: 1.2 MG, UNK
  3. EMBEDA [Suspect]
     Active Substance: MORPHINE SULFATE\NALTREXONE HYDROCHLORIDE
     Dosage: 2 DF, DAILY(60COUNT AND 30 DAYS SUPPLY)
     Route: 048
  4. HYDROCODONE [Concomitant]
     Active Substance: HYDROCODONE
     Indication: BONE PAIN
     Dosage: 1 DF, AS NEEDED
     Route: 048
     Dates: start: 1997
  5. BACLOFEN. [Concomitant]
     Active Substance: BACLOFEN
     Indication: NECK PAIN
  6. EMBEDA [Suspect]
     Active Substance: MORPHINE SULFATE\NALTREXONE HYDROCHLORIDE
     Indication: PAIN
     Dosage: UNK
     Route: 048
  7. EMBEDA [Suspect]
     Active Substance: MORPHINE SULFATE\NALTREXONE HYDROCHLORIDE
     Indication: SPINAL OSTEOARTHRITIS
     Dosage: UNK
     Route: 048
  8. EMBEDA [Suspect]
     Active Substance: MORPHINE SULFATE\NALTREXONE HYDROCHLORIDE
     Dosage: 1.2 MG, DAILY (ONE CAPSULE BY MOUTH EVERY DAY FOR 20 DAYS)
     Route: 048
     Dates: start: 20190514
  9. EMBEDA [Suspect]
     Active Substance: MORPHINE SULFATE\NALTREXONE HYDROCHLORIDE
     Dosage: UNK (30 MG/1.2 MG)
  10. CYCLOBENZAPRINE. [Concomitant]
     Active Substance: CYCLOBENZAPRINE
     Indication: NECK PAIN
     Dosage: 10 MG, 3X/DAY
  11. HYDRALAZINE [Concomitant]
     Active Substance: HYDRALAZINE HYDROCHLORIDE
     Indication: HYPERTENSION
     Dosage: 25 MG, AS NEEDED (ONE TABLET EVERY SIX HOURS AS NEEDED)
     Route: 048
  12. EMBEDA [Suspect]
     Active Substance: MORPHINE SULFATE\NALTREXONE HYDROCHLORIDE
     Dosage: UNK (^MSRE^ 30 QD)
     Route: 048
     Dates: start: 20190208
  13. EMBEDA [Suspect]
     Active Substance: MORPHINE SULFATE\NALTREXONE HYDROCHLORIDE
     Indication: MYALGIA
     Dosage: 20 MG, 2X/DAY (EVERY 12 HOURS)
     Route: 048
     Dates: start: 201801
  14. EMBEDA [Suspect]
     Active Substance: MORPHINE SULFATE\NALTREXONE HYDROCHLORIDE
     Indication: NEURALGIA
     Dosage: 1 DF, 2X/DAY
     Route: 048
  15. PROPRANOLOL [Concomitant]
     Active Substance: PROPRANOLOL HYDROCHLORIDE
     Indication: HYPERTENSION
     Dosage: 40 MG, AS NEEDED (40MG TABLET BY AS NEEDED, SUPPOSED TO BE TAKEN TWICE DAILY)
  16. EMBEDA [Suspect]
     Active Substance: MORPHINE SULFATE\NALTREXONE HYDROCHLORIDE
     Indication: BONE PAIN
     Dosage: 10 MG, 1X/DAY
     Route: 048
     Dates: start: 20180113
  17. EMBEDA [Suspect]
     Active Substance: MORPHINE SULFATE\NALTREXONE HYDROCHLORIDE
     Dosage: UNK
     Route: 048
  18. HYDROCODONE [Concomitant]
     Active Substance: HYDROCODONE
     Indication: PAIN
     Dosage: 10 MG, 3X/DAY (ONE EVERY 8 HOURS)
     Route: 048
  19. BACLOFEN. [Concomitant]
     Active Substance: BACLOFEN
     Indication: MYALGIA
     Dosage: 20 MG, AS NEEDED (ONE TABLET AS NEEDED THREE TIME A DAY)

REACTIONS (15)
  - Hypertension [Unknown]
  - Product dispensing error [Unknown]
  - Personality disorder [Unknown]
  - Product odour abnormal [Unknown]
  - Product preparation error [Unknown]
  - Counterfeit product administered [Unknown]
  - Suspected counterfeit product [Not Recovered/Not Resolved]
  - Pain [Unknown]
  - Drug ineffective [Not Recovered/Not Resolved]
  - Tremor [Unknown]
  - Insomnia [Unknown]
  - Balance disorder [Unknown]
  - General physical health deterioration [Unknown]
  - Gait disturbance [Unknown]
  - Malaise [Unknown]

NARRATIVE: CASE EVENT DATE: 20180213
